FAERS Safety Report 7210461-0 (Version None)
Quarter: 2011Q1

REPORT INFORMATION
  Report Type: 
  Country: None (occurrence: None)
  Receive Date: 20110105
  Receipt Date: 20101228
  Transmission Date: 20110831
  Serious: Yes (Disabling)
  Sender: FDA-Public Use
  Company Number: BE-JNJFOC-20101209054

PATIENT
  Age: 68 Year
  Sex: Female

DRUGS (1)
  1. REMICADE [Suspect]
     Indication: CROHN'S DISEASE
     Dosage: FREQUENCY UNSPECIFIED
     Route: 042

REACTIONS (4)
  - RASH [None]
  - ARTHRALGIA [None]
  - MOBILITY DECREASED [None]
  - MUSCULOSKELETAL STIFFNESS [None]
